FAERS Safety Report 16540174 (Version 1)
Quarter: 2019Q3

REPORT INFORMATION
  Report Type: Spontaneous
  Country: IT (occurrence: IT)
  Receive Date: 20190708
  Receipt Date: 20190708
  Transmission Date: 20191004
  Serious: Yes (Hospitalization)
  Sender: FDA-Public Use
  Company Number: IT-SA-2019SA180396

PATIENT
  Age: 51 Year
  Sex: Female

DRUGS (5)
  1. STILNOX [Suspect]
     Active Substance: ZOLPIDEM TARTRATE
     Indication: DRUG ABUSE
     Dosage: 300 MG, TOTAL
     Route: 048
     Dates: start: 20190206, end: 20190206
  2. ALPRAZOLAM. [Suspect]
     Active Substance: ALPRAZOLAM
     Indication: DRUG ABUSE
     Dosage: 8 MG, TOTAL
     Route: 048
     Dates: start: 20190206, end: 20190206
  3. DAPAROX [PAROXETINE MESILATE] [Suspect]
     Active Substance: PAROXETINE MESYLATE
     Indication: DRUG ABUSE
     Dosage: 300 MG, TOTAL
     Route: 048
     Dates: start: 20190206, end: 20190206
  4. VENLAFAXINE HYDROCHLORIDE. [Suspect]
     Active Substance: VENLAFAXINE HYDROCHLORIDE
     Indication: DRUG ABUSE
     Dosage: 2.1 G, TOTAL
     Route: 048
     Dates: start: 20190206, end: 20190206
  5. ALPRAZOLAM. [Suspect]
     Active Substance: ALPRAZOLAM
     Dosage: 18.5 MG, TOTAL
     Route: 048
     Dates: start: 20190206, end: 20190206

REACTIONS (5)
  - Bradyphrenia [Recovered/Resolved]
  - Drug abuse [Recovered/Resolved]
  - Disorientation [Recovered/Resolved]
  - Intentional overdose [Unknown]
  - Gait disturbance [Recovered/Resolved]

NARRATIVE: CASE EVENT DATE: 20190206
